FAERS Safety Report 9695392 (Version 1)
Quarter: 2013Q4

REPORT INFORMATION
  Report Type: Spontaneous
  Country: US (occurrence: None)
  Receive Date: 20131118
  Receipt Date: 20131118
  Transmission Date: 20140711
  Serious: Yes (Other)
  Sender: FDA-Public Use
  Company Number: None

PATIENT
  Age: 40 Year
  Sex: Female

DRUGS (2)
  1. LEXAPRO [Suspect]
     Indication: DEPRESSION
     Dates: start: 2008, end: 2012
  2. ESCITALOPRAM OXALATE [Suspect]
     Dates: start: 20120625, end: 201304

REACTIONS (5)
  - Sleep disorder [None]
  - Mood swings [None]
  - Hypersensitivity [None]
  - Abulia [None]
  - Product substitution issue [None]
